FAERS Safety Report 4413575-3 (Version None)
Quarter: 2004Q3

REPORT INFORMATION
  Report Type: 
  Country: None (occurrence: None)
  Receive Date: 20040729
  Receipt Date: 20040722
  Transmission Date: 20050211
  Serious: Yes (Death)
  Sender: FDA-Public Use
  Company Number: JP-JNJFOC-20040705941

PATIENT
  Age: 75 Year
  Sex: Female

DRUGS (10)
  1. LEVOFLOXACIN [Suspect]
     Indication: ACUTE RESPIRATORY DISTRESS SYNDROME
     Dosage: 500 MG, 1 IN 1 DAY, INTRAVENOUS
     Route: 042
     Dates: start: 20040606, end: 20040610
  2. LEVOFLOXACIN [Suspect]
     Indication: PNEUMONITIS
     Dosage: 500 MG, 1 IN 1 DAY, INTRAVENOUS
     Route: 042
     Dates: start: 20040606, end: 20040610
  3. NOREPINEPHRINE BITARTRATE [Suspect]
     Indication: HYPOTENSION
     Dosage: INTRAVENOUS
     Route: 042
     Dates: start: 20040606
  4. DOBUTREX [Suspect]
     Indication: HYPOTENSION
     Dosage: INTRAVENOUS
     Route: 042
     Dates: start: 20040606, end: 20040610
  5. TAZOBAC (PIP/TAZO) [Concomitant]
  6. ERYTHROMYCIN [Concomitant]
  7. AMITRIPTYLIN (AMITRIPTYLINE) [Concomitant]
  8. PREDNISONE [Concomitant]
  9. MARCUMAR [Concomitant]
  10. ALDACTONE [Concomitant]

REACTIONS (5)
  - BLOOD CALCIUM INCREASED [None]
  - ELECTROCARDIOGRAM QT PROLONGED [None]
  - LEFT VENTRICULAR FAILURE [None]
  - PROTEIN TOTAL DECREASED [None]
  - VENTRICULAR TACHYCARDIA [None]
